FAERS Safety Report 5388422-6 (Version None)
Quarter: 2007Q3

REPORT INFORMATION
  Report Type: 
  Country: None (occurrence: None)
  Receive Date: 20070716
  Receipt Date: 20070703
  Transmission Date: 20080115
  Serious: Yes (Hospitalization)
  Sender: FDA-Public Use
  Company Number: IE-ELI_LILLY_AND_COMPANY-IE200703005009

PATIENT
  Age: 16 Year
  Sex: Male

DRUGS (7)
  1. STRATTERA [Suspect]
     Indication: ATTENTION DEFICIT/HYPERACTIVITY DISORDER
     Dosage: 25 MG, DAILY (1/D)
     Route: 048
     Dates: start: 20070123
  2. STRATTERA [Suspect]
     Dosage: 40 MG, DAILY (1/D)
     Route: 048
  3. STRATTERA [Suspect]
     Dosage: 60 MG, DAILY (1/D)
     Route: 048
  4. STRATTERA [Suspect]
     Dosage: 70 MG, DAILY (1/D)
     Route: 048
     Dates: end: 20070317
  5. CONCERTA [Concomitant]
     Indication: ATTENTION DEFICIT/HYPERACTIVITY DISORDER
     Dosage: 54 MG, UNKNOWN
     Route: 065
     Dates: end: 20070317
  6. CONCERTA [Concomitant]
     Dosage: 36 MG, UNKNOWN
     Route: 065
  7. CONCERTA [Concomitant]
     Dosage: 18 MG, UNKNOWN
     Route: 065

REACTIONS (2)
  - NEUROMYELITIS OPTICA [None]
  - VERTEBRAL COLUMN MASS [None]
